FAERS Safety Report 5387577-7 (Version None)
Quarter: 2007Q3

REPORT INFORMATION
  Report Type: 
  Country: None (occurrence: None)
  Receive Date: 20070711
  Receipt Date: 20070629
  Transmission Date: 20080115
  Serious: Yes (Other)
  Sender: FDA-Public Use
  Company Number: GXKR2007GB05589

PATIENT
  Age: 12 Month

DRUGS (4)
  1. METHADONE HCL [Suspect]
     Dosage: TRANSPLACENTAL
     Route: 064
  2. DIAZEPAM [Suspect]
     Dosage: TRANSPLACENTAL
     Route: 064
  3. AMITRYPTILINE HCL (NGX) (AMITRIPTYLINE) UNKNOWN [Suspect]
     Dosage: TRANSPLACENTAL
     Route: 064
  4. CANNABIS (CANNABIS, CANNABIS SATIVA) [Suspect]
     Dosage: TRANSPLACENTAL
     Route: 064

REACTIONS (3)
  - DEVELOPMENTAL DELAY [None]
  - DRUG EXPOSURE DURING PREGNANCY [None]
  - NYSTAGMUS [None]
